FAERS Safety Report 21001680 (Version 1)
Quarter: 2022Q2

REPORT INFORMATION
  Report Type: Spontaneous
  Country: US (occurrence: US)
  Receive Date: 20220624
  Receipt Date: 20220624
  Transmission Date: 20220720
  Serious: Yes (Other)
  Sender: FDA-Public Use
  Company Number: US-BAUSCH-BL-2022-015764

PATIENT
  Age: 68 Year
  Sex: Male
  Weight: 85 kg

DRUGS (18)
  1. ISOPROTERENOL [Suspect]
     Active Substance: ISOPROTERENOL
     Indication: Atrioventricular block complete
     Dosage: 10 UG/MIN
     Route: 065
  2. ATROPINE [Suspect]
     Active Substance: ATROPINE
     Indication: Atrioventricular block complete
     Route: 042
  3. DILTIAZEM [Concomitant]
     Active Substance: DILTIAZEM
     Indication: Preoperative care
     Dosage: CHRONICALLY
     Route: 065
  4. LIDOCAINE [Concomitant]
     Active Substance: LIDOCAINE
     Indication: Ventricular tachycardia
     Route: 065
  5. LIDOCAINE [Concomitant]
     Active Substance: LIDOCAINE
     Dosage: 2 MG/MIN
     Route: 042
  6. HEPARIN [Concomitant]
     Active Substance: HEPARIN SODIUM
     Indication: Product used for unknown indication
     Dosage: 1000 IU/H
     Route: 042
  7. NITROGLYCERIN [Concomitant]
     Active Substance: NITROGLYCERIN
     Indication: Product used for unknown indication
     Dosage: (DOSE-TITRATED TO A MEAN ARTERIAL PRESSURE (MAP) OF 70-80 MM HG)
     Route: 042
  8. METOPROLOL [Concomitant]
     Active Substance: METOPROLOL
     Indication: Product used for unknown indication
     Route: 065
  9. FUROSEMIDE [Concomitant]
     Active Substance: FUROSEMIDE
     Indication: Product used for unknown indication
     Route: 065
  10. RANITIDINE [Concomitant]
     Active Substance: RANITIDINE
     Indication: Product used for unknown indication
     Route: 065
  11. SUCRALFATE [Concomitant]
     Active Substance: SUCRALFATE
     Indication: Product used for unknown indication
     Route: 065
  12. INSULIN NOS [Concomitant]
     Active Substance: INSULIN NOS
     Indication: Product used for unknown indication
     Route: 065
  13. OXAZEPAM [Concomitant]
     Active Substance: OXAZEPAM
     Indication: Sedation
     Route: 048
  14. METOCLOPRAMIDE [Concomitant]
     Active Substance: METOCLOPRAMIDE
     Indication: Preoperative care
     Route: 065
  15. PANCURONIUM [Concomitant]
     Active Substance: PANCURONIUM
     Indication: Anaesthesia
     Route: 065
  16. SUFENTANIL [Concomitant]
     Active Substance: SUFENTANIL
     Indication: Anaesthesia
     Route: 065
  17. VECURONIUM [Concomitant]
     Active Substance: VECURONIUM BROMIDE
     Indication: Anaesthesia
     Route: 065
  18. SCOPOLAMINE [Concomitant]
     Active Substance: SCOPOLAMINE
     Indication: Amnesia
     Route: 042

REACTIONS (3)
  - Atrial flutter [Recovered/Resolved]
  - Atrial fibrillation [Recovered/Resolved]
  - Therapy non-responder [Unknown]
